FAERS Safety Report 22975541 (Version 2)
Quarter: 2023Q4

REPORT INFORMATION
  Report Type: Spontaneous
  Country: JP (occurrence: JP)
  Receive Date: 20230925
  Receipt Date: 20231003
  Transmission Date: 20240110
  Serious: Yes (Hospitalization, Other)
  Sender: FDA-Public Use
  Company Number: JP-BEH-2023163315

PATIENT
  Sex: Male

DRUGS (1)
  1. HUMAN IMMUNOGLOBULIN G [Suspect]
     Active Substance: HUMAN IMMUNOGLOBULIN G
     Indication: Chronic inflammatory demyelinating polyradiculoneuropathy
     Dosage: UNK, 3 COURSES
     Route: 042

REACTIONS (9)
  - Gait disturbance [Unknown]
  - Drug ineffective [Unknown]
  - Postural tremor [Unknown]
  - Muscle atrophy [Unknown]
  - Areflexia [Unknown]
  - Sensory disturbance [Unknown]
  - Romberg test positive [Unknown]
  - Ataxia [Unknown]
  - Muscular weakness [Unknown]
